FAERS Safety Report 9700363 (Version 2)
Quarter: 2013Q4

REPORT INFORMATION
  Report Type: Spontaneous
  Country: US (occurrence: None)
  Receive Date: 20131119
  Receipt Date: 20131218
  Transmission Date: 20140711
  Serious: Yes (Hospitalization, Other)
  Sender: FDA-Public Use
  Company Number: VAL_02821_2013

PATIENT
  Sex: Female

DRUGS (1)
  1. LOPRESSOR [Suspect]
     Indication: PRODUCT USED FOR UNKNOWN INDICATION
     Route: 048

REACTIONS (20)
  - Pain in extremity [None]
  - Back pain [None]
  - Musculoskeletal pain [None]
  - Chest pain [None]
  - General physical condition abnormal [None]
  - Malaise [None]
  - Unevaluable event [None]
  - Coronary arterial stent insertion [None]
  - Angina pectoris [None]
  - Dyspnoea [None]
  - Dizziness [None]
  - Nausea [None]
  - Hyperhidrosis [None]
  - Fatigue [None]
  - Pallor [None]
  - Restlessness [None]
  - Peripheral coldness [None]
  - Palpitations [None]
  - Product quality issue [None]
  - Product colour issue [None]
